FAERS Safety Report 6247628-4 (Version None)
Quarter: 2009Q2

REPORT INFORMATION
  Report Type: 
  Country: None (occurrence: None)
  Receive Date: 20090626
  Receipt Date: 20090624
  Transmission Date: 20091009
  Serious: Yes (Other)
  Sender: FDA-Public Use
  Company Number: GB-BRISTOL-MYERS SQUIBB COMPANY-14677272

PATIENT
  Age: 89 Year
  Weight: 49 kg

DRUGS (2)
  1. IRBESARTAN + HCTZ [Suspect]
     Indication: HYPERTENSION
     Dates: start: 20090427, end: 20090516
  2. CORACTEN [Concomitant]

REACTIONS (4)
  - CONFUSIONAL STATE [None]
  - DISORIENTATION [None]
  - HYPONATRAEMIA [None]
  - PARAESTHESIA [None]
